FAERS Safety Report 19774798 (Version 1)
Quarter: 2021Q3

REPORT INFORMATION
  Report Type: Other
  Country: NL (occurrence: NL)
  Receive Date: 20210901
  Receipt Date: 20210901
  Transmission Date: 20211014
  Serious: Yes (Hospitalization, Other)
  Sender: FDA-Public Use
  Company Number: NL-ASPEN-GLO2021NL006888

PATIENT

DRUGS (8)
  1. COTRIMOXAZOLE [Suspect]
     Active Substance: SULFAMETHOXAZOLE\TRIMETHOPRIM
     Indication: ANTIFUNGAL PROPHYLAXIS
     Dosage: UNK
     Route: 065
     Dates: start: 2020, end: 2020
  2. PREDNISONE. [Suspect]
     Active Substance: PREDNISONE
     Dosage: 1 MG/KG
     Route: 065
     Dates: start: 2020
  3. IPILIMUMAB [Suspect]
     Active Substance: IPILIMUMAB
     Indication: METASTATIC MALIGNANT MELANOMA
     Dosage: 3 MG/KG EVERY 3 WEEKS
     Route: 065
     Dates: start: 202002
  4. DEXAMETHASONE. [Suspect]
     Active Substance: DEXAMETHASONE
     Dosage: 6 MG, 1 DOSE 12 HOURS
     Route: 048
     Dates: start: 2020
  5. DEXAMETHASONE. [Suspect]
     Active Substance: DEXAMETHASONE
     Indication: HAEMOPHAGOCYTIC LYMPHOHISTIOCYTOSIS
     Dosage: 8 MG, 1 DOSE 12 HOURS
     Route: 048
     Dates: start: 2020
  6. DEXAMETHASONE. [Suspect]
     Active Substance: DEXAMETHASONE
     Dosage: 10 MG, 1 DOSE 12 HOURS
     Route: 040
     Dates: start: 2020, end: 2020
  7. PREDNISONE. [Suspect]
     Active Substance: PREDNISONE
     Indication: LIVER FUNCTION TEST ABNORMAL
     Dosage: 2 MG/KG
     Route: 065
     Dates: start: 2020
  8. NIVOLUMAB [Suspect]
     Active Substance: NIVOLUMAB
     Indication: METASTATIC MALIGNANT MELANOMA
     Dosage: 1 MG/KG EVERY 3 WEEKS
     Route: 065
     Dates: start: 202002

REACTIONS (5)
  - Drug reaction with eosinophilia and systemic symptoms [Recovering/Resolving]
  - Haemophagocytic lymphohistiocytosis [Recovered/Resolved]
  - Bone infarction [Unknown]
  - Mood swings [Unknown]
  - Weight increased [Unknown]

NARRATIVE: CASE EVENT DATE: 2020
